FAERS Safety Report 8529535-7 (Version None)
Quarter: 2012Q3

REPORT INFORMATION
  Report Type: 
  Country: None (occurrence: None)
  Receive Date: 20120723
  Receipt Date: 20120710
  Transmission Date: 20120928
  Serious: Yes (Other)
  Sender: FDA-Public Use
  Company Number: JP-VERTEX PHARMACEUTICALS INC.-AE-2012-010238

PATIENT
  Age: 47 Year
  Sex: Female

DRUGS (9)
  1. RIBAVIRIN [Concomitant]
     Route: 048
     Dates: start: 20120606
  2. PEGINTERFERON ALFA-2B [Concomitant]
     Route: 058
     Dates: start: 20120613
  3. OLOPATADINE HCL [Concomitant]
     Route: 048
  4. RIBAVIRIN [Concomitant]
     Route: 048
     Dates: start: 20120531, end: 20120605
  5. PEGINTERFERON ALFA-2B [Concomitant]
     Route: 058
     Dates: start: 20120531, end: 20120531
  6. TELAVIC (TELAPREVIR) [Suspect]
     Indication: HEPATITIS C
     Route: 048
     Dates: start: 20120524
  7. RIBAVIRIN [Concomitant]
     Indication: HEPATITIS C
     Route: 048
     Dates: start: 20120524, end: 20120530
  8. PEGINTERFERON ALFA-2B [Concomitant]
     Indication: HEPATITIS C
     Route: 058
     Dates: start: 20120524, end: 20120524
  9. PEGINTERFERON ALFA-2B [Concomitant]
     Route: 058
     Dates: start: 20120606, end: 20120606

REACTIONS (1)
  - NEUTROPHIL COUNT DECREASED [None]
